FAERS Safety Report 10098944 (Version 1)
Quarter: 2014Q2

REPORT INFORMATION
  Report Type: Spontaneous
  Country: US (occurrence: None)
  Receive Date: 20140422
  Receipt Date: 20140422
  Transmission Date: 20141212
  Serious: No
  Sender: FDA-Public Use
  Company Number: None

PATIENT
  Age: 83 Year
  Sex: Female
  Weight: 77.11 kg

DRUGS (7)
  1. CEFDINIR [Suspect]
     Indication: COUGH
     Dosage: 300MG, 2 CAPSULES, 1 CAPSULE TWICE DAILEY, BY MOUTH
     Route: 048
     Dates: start: 20140319, end: 20140325
  2. CEFDINIR [Suspect]
     Indication: DIARRHOEA
     Dosage: 300MG, 2 CAPSULES, 1 CAPSULE TWICE DAILEY, BY MOUTH
     Route: 048
     Dates: start: 20140319, end: 20140325
  3. LETHYROXINE [Concomitant]
  4. ATENOLOL [Concomitant]
  5. SIMAVASTATIN [Concomitant]
  6. MONTELULACT [Concomitant]
  7. ASPIRIN (325MG) [Concomitant]

REACTIONS (6)
  - Vulvovaginal discomfort [None]
  - Diarrhoea [None]
  - Pruritus [None]
  - Ocular hyperaemia [None]
  - Vulvovaginal burning sensation [None]
  - Vulvovaginal pruritus [None]
